FAERS Safety Report 9460729 (Version 1)
Quarter: 2013Q3

REPORT INFORMATION
  Report Type: Spontaneous
  Country: US (occurrence: US)
  Receive Date: 20130815
  Receipt Date: 20130815
  Transmission Date: 20140515
  Serious: Yes (Other)
  Sender: FDA-Public Use
  Company Number: US-TEVA-426425USA

PATIENT
  Age: 75 Year
  Sex: Female
  Weight: 63.56 kg

DRUGS (2)
  1. QVAR [Suspect]
     Indication: ASTHMA
     Dosage: 2 PUFFS IN MORNING; 2 PUFFS AT NIGHT
     Dates: start: 201305
  2. QVAR [Suspect]
     Dosage: 1 PUFF IN MORNING; 1 PUFF AT NIGHT

REACTIONS (2)
  - Immune thrombocytopenic purpura [Recovering/Resolving]
  - Rash macular [Recovering/Resolving]
